FAERS Safety Report 5009505-6 (Version None)
Quarter: 2006Q2

REPORT INFORMATION
  Report Type: 
  Country: None (occurrence: None)
  Receive Date: 20060522
  Receipt Date: 20060515
  Transmission Date: 20061013
  Serious: Yes (Death, Life-Threatening, Hospitalization)
  Sender: FDA-Public Use
  Company Number: 2006-05-0037

PATIENT
  Age: 54 Year
  Sex: Female
  Weight: 131 kg

DRUGS (7)
  1. TEMODAR [Suspect]
     Indication: OLIGODENDROGLIOMA
     Dosage: 200 MG/M^2 ORAL
     Route: 048
     Dates: start: 20060215, end: 20060219
  2. TEMODAR [Suspect]
     Indication: OLIGODENDROGLIOMA
     Dosage: 200 MG/M^2 ORAL
     Route: 048
     Dates: end: 20060219
  3. TEGRETOL [Suspect]
     Indication: CONVULSION
     Dosage: 1200 BID ORAL
     Route: 048
  4. PREVACID [Concomitant]
  5. TIGAN TABLETS [Concomitant]
  6. KEPPRA [Concomitant]
  7. IRON [Concomitant]

REACTIONS (4)
  - APLASTIC ANAEMIA [None]
  - BLOOD GLUCOSE INCREASED [None]
  - DYSPNOEA EXACERBATED [None]
  - PANCYTOPENIA [None]
